FAERS Safety Report 6520006-6 (Version None)
Quarter: 2009Q4

REPORT INFORMATION
  Report Type: 
  Country: None (occurrence: None)
  Receive Date: 20091229
  Receipt Date: 20091222
  Transmission Date: 20100525
  Serious: Yes (Other)
  Sender: FDA-Public Use
  Company Number: US-JNJFOC-20091206473

PATIENT
  Sex: Female

DRUGS (2)
  1. INFANTS' TYLENOL [Suspect]
  2. INFANTS' TYLENOL [Suspect]
     Indication: DRUG USE FOR UNKNOWN INDICATION

REACTIONS (2)
  - MALAISE [None]
  - TRANSMISSION OF AN INFECTIOUS AGENT VIA A MEDICINAL PRODUCT [None]
